FAERS Safety Report 17537603 (Version 1)
Quarter: 2020Q1

REPORT INFORMATION
  Report Type: Spontaneous
  Country: GB (occurrence: GB)
  Receive Date: 20200313
  Receipt Date: 20200313
  Transmission Date: 20200409
  Serious: Yes (Other)
  Sender: FDA-Public Use
  Company Number: GB-BAUSCH-BL-2020-007363

PATIENT
  Age: 58 Year
  Sex: Female

DRUGS (1)
  1. VENLAFAXINE HYDROCHLORIDE. [Suspect]
     Active Substance: VENLAFAXINE HYDROCHLORIDE
     Indication: PRODUCT USED FOR UNKNOWN INDICATION
     Route: 065

REACTIONS (15)
  - Chills [Unknown]
  - Photophobia [Unknown]
  - Vomiting [Unknown]
  - Blood urine present [Unknown]
  - Condition aggravated [Unknown]
  - Nausea [Unknown]
  - Dysarthria [Unknown]
  - Decreased appetite [Unknown]
  - Blood pressure increased [Unknown]
  - Dysstasia [Unknown]
  - Balance disorder [Unknown]
  - Dizziness [Unknown]
  - Heart rate increased [Unknown]
  - Withdrawal syndrome [Unknown]
  - Hyperhidrosis [Unknown]
